FAERS Safety Report 17145354 (Version 1)
Quarter: 2019Q4

REPORT INFORMATION
  Report Type: Spontaneous
  Country: US (occurrence: US)
  Receive Date: 20191211
  Receipt Date: 20191211
  Transmission Date: 20200122
  Serious: Yes (Hospitalization)
  Sender: FDA-Public Use
  Company Number: None

PATIENT
  Sex: Male

DRUGS (21)
  1. ALENDRONATE [Concomitant]
     Active Substance: ALENDRONATE SODIUM
  2. ALPRAZOLAM. [Concomitant]
     Active Substance: ALPRAZOLAM
  3. LANTUS [Concomitant]
     Active Substance: INSULIN GLARGINE
  4. LIDOCAINE. [Concomitant]
     Active Substance: LIDOCAINE
  5. SYMBICORT [Concomitant]
     Active Substance: BUDESONIDE\FORMOTEROL FUMARATE DIHYDRATE
  6. AMITRIPTYLIN [Concomitant]
     Active Substance: AMITRIPTYLINE
  7. DOXYCYCL HCL [Concomitant]
  8. LEVEMIR [Concomitant]
     Active Substance: INSULIN DETEMIR
  9. NARCAN [Concomitant]
     Active Substance: NALOXONE HYDROCHLORIDE
  10. HUMIRA [Suspect]
     Active Substance: ADALIMUMAB
     Indication: RHEUMATOID ARTHRITIS
     Dosage: ?          OTHER FREQUENCY:EVERY OTHER WEEK;?
     Route: 058
     Dates: start: 20190523
  11. DUREZOL [Concomitant]
     Active Substance: DIFLUPREDNATE
  12. INCRUSE ELPT [Concomitant]
  13. ESOMEPRA MAG [Concomitant]
  14. PREDNISONE. [Concomitant]
     Active Substance: PREDNISONE
  15. BUSPIRONE [Concomitant]
     Active Substance: BUSPIRONE HYDROCHLORIDE
  16. ILEVRO [Concomitant]
     Active Substance: NEPAFENAC
  17. OXYCODONE AND ACETAMINOPHEN [Concomitant]
     Active Substance: ACETAMINOPHEN\OXYCODONE HYDROCHLORIDE
  18. VITAMIN D [Concomitant]
     Active Substance: VITAMIN D NOS
  19. FUROSEMIDE. [Concomitant]
     Active Substance: FUROSEMIDE
  20. GABAPENTIN. [Concomitant]
     Active Substance: GABAPENTIN
  21. MORPHINE SUL [Concomitant]
     Active Substance: MORPHINE SULFATE

REACTIONS (3)
  - Therapy cessation [None]
  - Pneumonia [None]
  - Nasal disorder [None]
